FAERS Safety Report 8991067 (Version 1)
Quarter: 2012Q4

REPORT INFORMATION
  Report Type: Spontaneous
  Country: DK (occurrence: None)
  Receive Date: 20121220
  Receipt Date: 20121220
  Transmission Date: 20130627
  Serious: Yes (Hospitalization, Other)
  Sender: FDA-Public Use
  Company Number: 2012MA014159

PATIENT
  Age: 55 Year
  Sex: Female

DRUGS (8)
  1. CETIRIZINE HCL [Suspect]
     Indication: MIGRAINE
     Dosage: 1 tab
  2. AMITRIPTYLINE (AMITRIPTYLINE) [Suspect]
     Indication: MIGRAINE
     Dosage: 1 tab
  3. CAFFEINE (CAFFEINE) [Suspect]
     Indication: MIGRAINE
     Dosage: 1 tab
  4. ABACAVIR AMD LAMIVUDINE (NO PREF. NAME) [Suspect]
     Indication: HIV INFECTION
     Route: 048
     Dates: start: 201103, end: 201105
  5. ABACAVIR AMD LAMIVUDINE (NO PREF. NAME) [Suspect]
     Route: 048
     Dates: start: 201103, end: 201105
  6. RITONAVIR [Suspect]
     Indication: HIV INFECTION
     Route: 048
     Dates: start: 201103, end: 201205
  7. REYATAZ [Suspect]
     Indication: HIV INFECTION
     Route: 048
     Dates: start: 201103, end: 201205
  8. MEFENAMIC ACID [Suspect]
     Indication: MIGRAINE
     Dosage: 1 tab

REACTIONS (6)
  - Lactic acidosis [None]
  - Nausea [None]
  - Malaise [None]
  - Headache [None]
  - Mononeuropathy multiplex [None]
  - Vomiting [None]
